FAERS Safety Report 8233773-0 (Version None)
Quarter: 2012Q1

REPORT INFORMATION
  Report Type: 
  Country: None (occurrence: None)
  Receive Date: 20120326
  Receipt Date: 20120315
  Transmission Date: 20120608
  Serious: Yes (Other)
  Sender: FDA-Public Use
  Company Number: CA-JNJFOC-20120307913

PATIENT
  Sex: Female
  Weight: 82.3 kg

DRUGS (1)
  1. REMICADE [Suspect]
     Indication: CROHN'S DISEASE
     Dosage: HAS HAD 36 INFUSIONS
     Route: 042

REACTIONS (1)
  - TONSILLAR DISORDER [None]
